FAERS Safety Report 4421709-X (Version None)
Quarter: 2004Q3

REPORT INFORMATION
  Report Type: 
  Country: None (occurrence: None)
  Receive Date: 20040806
  Receipt Date: 20040720
  Transmission Date: 20050211
  Serious: Yes (Other)
  Sender: FDA-Public Use
  Company Number: US_0406103765

PATIENT
  Age: 72 Year
  Sex: Female

DRUGS (1)
  1. FORTEO [Suspect]
     Indication: OSTEOPOROSIS
     Dosage: 20 UG DAY
     Dates: start: 20030601, end: 20040603

REACTIONS (4)
  - FEAR [None]
  - PATHOLOGICAL FRACTURE [None]
  - PELVIC FRACTURE [None]
  - SPINAL FRACTURE [None]
